FAERS Safety Report 12074163 (Version 1)
Quarter: 2016Q1

REPORT INFORMATION
  Report Type: Spontaneous
  Country: FR (occurrence: FR)
  Receive Date: 20160212
  Receipt Date: 20160212
  Transmission Date: 20160526
  Serious: Yes (Other)
  Sender: FDA-Public Use
  Company Number: FR-BRISTOL-MYERS SQUIBB COMPANY-BMS-2016-007339

PATIENT
  Age: 35 Year
  Sex: Female

DRUGS (5)
  1. ARACYTINE [Suspect]
     Active Substance: CYTARABINE
     Indication: ACUTE MYELOID LEUKAEMIA
     Dosage: 200 MG/M2, UNK
     Route: 042
     Dates: start: 20150604
  2. HYDREA [Suspect]
     Active Substance: HYDROXYUREA
     Indication: ACUTE MYELOID LEUKAEMIA
     Dosage: UNK
     Route: 048
     Dates: start: 20150602
  3. DEXAMETHASONE. [Suspect]
     Active Substance: DEXAMETHASONE
     Indication: ACUTE MYELOID LEUKAEMIA
     Dosage: UNK
     Route: 048
     Dates: start: 20150602
  4. METHOTREXATE [Suspect]
     Active Substance: METHOTREXATE
     Indication: ACUTE MYELOID LEUKAEMIA
     Dosage: UNK
     Route: 042
     Dates: start: 20150611
  5. ZAVEDOS [Suspect]
     Active Substance: IDARUBICIN
     Indication: ACUTE MYELOID LEUKAEMIA
     Dosage: UNK
     Route: 042
     Dates: start: 20150608

REACTIONS (8)
  - Sepsis syndrome [Unknown]
  - Chronic villitis of unknown etiology [Unknown]
  - Maternal exposure during pregnancy [Recovered/Resolved]
  - Foetal death [Unknown]
  - Uterine dilation and curettage [Unknown]
  - Subdural haematoma [Unknown]
  - Abortion induced [Unknown]
  - Off label use [Unknown]

NARRATIVE: CASE EVENT DATE: 201506
